FAERS Safety Report 5719630-X (Version None)
Quarter: 2008Q2

REPORT INFORMATION
  Report Type: 
  Country: None (occurrence: None)
  Receive Date: 20080428
  Receipt Date: 20080423
  Transmission Date: 20081010
  Serious: Yes (Other)
  Sender: FDA-Public Use
  Company Number: JP-BRISTOL-MYERS SQUIBB COMPANY-14164073

PATIENT
  Age: 64 Year
  Sex: Female

DRUGS (3)
  1. MITOMYCIN [Suspect]
     Indication: ANAL CANCER
     Route: 040
  2. FLUOROURACIL [Suspect]
     Indication: ANAL CANCER
     Route: 042
  3. RADIOTHERAPY [Suspect]
     Indication: ANAL CANCER
     Dosage: 1 DOSAGE FORM = 54 GRAY(1ST COURSE) PER 15-25 FRACTIONS.

REACTIONS (3)
  - DERMATITIS [None]
  - LEUKOPENIA [None]
  - THROMBOCYTOPENIA [None]
